FAERS Safety Report 4408881-2 (Version None)
Quarter: 2004Q3

REPORT INFORMATION
  Report Type: 
  Country: None (occurrence: None)
  Receive Date: 20040727
  Receipt Date: 20040716
  Transmission Date: 20050211
  Serious: Yes (Other)
  Sender: FDA-Public Use
  Company Number: JP-GLAXOSMITHKLINE-B0340346A

PATIENT
  Age: 67 Year
  Sex: Female

DRUGS (4)
  1. PAXIL [Suspect]
     Indication: DEPRESSION
     Route: 048
     Dates: start: 20040621, end: 20040705
  2. SYMMETREL [Concomitant]
     Route: 048
  3. LENDORM [Concomitant]
     Route: 048
  4. AKINETON [Concomitant]
     Route: 065

REACTIONS (8)
  - AGITATION [None]
  - ARRHYTHMIA [None]
  - BLOOD PRESSURE INCREASED [None]
  - HYPERHIDROSIS [None]
  - HYPERTENSION [None]
  - PARKINSONISM [None]
  - PYREXIA [None]
  - SEROTONIN SYNDROME [None]
